FAERS Safety Report 9831049 (Version 2)
Quarter: 2014Q1

REPORT INFORMATION
  Report Type: Spontaneous
  Country: JP (occurrence: JP)
  Receive Date: 20140120
  Receipt Date: 20140120
  Transmission Date: 20141002
  Serious: Yes (Other)
  Sender: FDA-Public Use
  Company Number: JP-PFIZER INC-2013354370

PATIENT
  Age: 75 Year
  Sex: Female

DRUGS (2)
  1. SULFASALAZINE [Suspect]
     Indication: RHEUMATOID ARTHRITIS
     Dosage: UNK
     Route: 048
  2. SULFASALAZINE [Suspect]
     Dosage: UNK
     Route: 048

REACTIONS (3)
  - Encephalopathy [Recovering/Resolving]
  - Meningitis [Recovering/Resolving]
  - Pleurisy [Recovering/Resolving]
